FAERS Safety Report 18392432 (Version 1)
Quarter: 2020Q4

REPORT INFORMATION
  Report Type: Spontaneous
  Country: US (occurrence: US)
  Receive Date: 20201016
  Receipt Date: 20201016
  Transmission Date: 20210114
  Serious: No
  Sender: FDA-Public Use
  Company Number: None

PATIENT
  Age: 34 Year
  Sex: Female

DRUGS (1)
  1. COSENTYX [Suspect]
     Active Substance: SECUKINUMAB
     Dosage: OTHER
     Route: 058
     Dates: start: 201805, end: 201911

REACTIONS (3)
  - Influenza [None]
  - Gallbladder disorder [None]
  - Drug ineffective [None]

NARRATIVE: CASE EVENT DATE: 20191115
